FAERS Safety Report 4554839-2 (Version None)
Quarter: 2005Q1

REPORT INFORMATION
  Report Type: 
  Country: None (occurrence: None)
  Receive Date: 20050114
  Receipt Date: 20030612
  Transmission Date: 20050727
  Serious: Yes (Other)
  Sender: FDA-Public Use
  Company Number: GXKR2003FR00568

PATIENT
  Age: 60 Year
  Sex: Female

DRUGS (7)
  1. ZOPICLONE (NGX) (ZOPICLONE) [Suspect]
     Indication: BRONCHIAL INFECTION
  2. AMOXICILLIN + CLAVULANATE POTASSIUM (NGX) (AMOXICILLIN, CLAVULANATE) [Suspect]
     Indication: BRONCHIAL INFECTION
     Dosage: 3000/600 MG, QD
  3. CIPROFLOXACIN [Suspect]
     Indication: BRONCHIAL INFECTION
     Dosage: 1000 MG, QD
  4. AMBROXOL (NGX) (AMBROXOL) [Suspect]
     Indication: BRONCHIAL INFECTION
     Dosage: 90 MG, QD
  5. FENSPIRIDE (FENSPIRIDE) [Suspect]
     Dosage: 240 MG
  6. TERBUTALINE SULFATE [Suspect]
     Indication: BRONCHIAL INFECTION
     Dosage: 15 MG, QD
  7. IPRATROPIUM BROMIDE [Suspect]
     Dosage: 1.5 MG, QD

REACTIONS (4)
  - DELIRIUM [None]
  - DRUG INTERACTION [None]
  - HALLUCINATION [None]
  - PERSECUTORY DELUSION [None]
